FAERS Safety Report 11054078 (Version 1)
Quarter: 2015Q2

REPORT INFORMATION
  Report Type: Spontaneous
  Country: CA (occurrence: CA)
  Receive Date: 20150422
  Receipt Date: 20150422
  Transmission Date: 20150821
  Serious: Yes (Death)
  Sender: FDA-Public Use
  Company Number: CA-ROCHE-1565705

PATIENT
  Age: 39 Year
  Sex: Female

DRUGS (4)
  1. MABCAMPATH [Suspect]
     Active Substance: ALEMTUZUMAB
     Indication: GRAFT VERSUS HOST DISEASE IN SKIN
     Route: 042
  2. MYCOPHENOLATE MOFETIL. [Suspect]
     Active Substance: MYCOPHENOLATE MOFETIL
     Indication: PRODUCT USED FOR UNKNOWN INDICATION
     Route: 065
  3. CYCLOSPORINE. [Suspect]
     Active Substance: CYCLOSPORINE
     Indication: PRODUCT USED FOR UNKNOWN INDICATION
     Route: 065
  4. MABCAMPATH [Suspect]
     Active Substance: ALEMTUZUMAB
     Indication: GRAFT VERSUS HOST DISEASE IN GASTROINTESTINAL TRACT

REACTIONS (7)
  - Respiratory disorder [Fatal]
  - Respiratory distress [Fatal]
  - Dyspnoea [Fatal]
  - Productive cough [Fatal]
  - Influenza [Fatal]
  - Lung infiltration [Fatal]
  - Rhinorrhoea [Fatal]
